FAERS Safety Report 6002193-1 (Version None)
Quarter: 2008Q4

REPORT INFORMATION
  Report Type: 
  Country: None (occurrence: None)
  Receive Date: 20081212
  Receipt Date: 20081204
  Transmission Date: 20090506
  Serious: Yes (Hospitalization)
  Sender: FDA-Public Use
  Company Number: 2008SP024610

PATIENT
  Age: 75 Year
  Sex: Male
  Weight: 89 kg

DRUGS (10)
  1. TEMOZOLOMIDE [Suspect]
     Indication: GLIOBLASTOMA MULTIFORME
     Dosage: 430 MG; QD; PO
     Route: 048
     Dates: start: 20080801, end: 20080805
  2. BEVACIZUMAB [Suspect]
     Indication: GLIOBLASTOMA MULTIFORME
     Dosage: 890 MG; QOW; IV, 890 MG; QOW; IV
     Route: 042
     Dates: start: 20080801
  3. BEVACIZUMAB [Suspect]
     Indication: GLIOBLASTOMA MULTIFORME
     Dosage: 890 MG; QOW; IV, 890 MG; QOW; IV
     Route: 042
     Dates: start: 20080815
  4. CARDIZEM CD (CON.) [Concomitant]
  5. COZAAR (CON.) [Concomitant]
  6. ALLEGRA (CON.) [Concomitant]
  7. FLONASE (CON.) [Concomitant]
  8. FLOVENT (CON.) [Concomitant]
  9. KEPPRA (CON.) [Concomitant]
  10. ZOCOR (CON.) [Concomitant]

REACTIONS (5)
  - FEBRILE NEUTROPENIA [None]
  - HAEMATOCRIT DECREASED [None]
  - HAEMOGLOBIN DECREASED [None]
  - WHEEZING [None]
  - WHITE BLOOD CELL COUNT DECREASED [None]
